FAERS Safety Report 12228858 (Version 2)
Quarter: 2016Q2

REPORT INFORMATION
  Report Type: Spontaneous
  Country: JP (occurrence: JP)
  Receive Date: 20160401
  Receipt Date: 20160414
  Transmission Date: 20160815
  Serious: Yes (Hospitalization)
  Sender: FDA-Public Use
  Company Number: PHJP2016JP007569

PATIENT

DRUGS (1)
  1. EXELON PATCH [Suspect]
     Active Substance: RIVASTIGMINE
     Indication: DEMENTIA ALZHEIMER^S TYPE
     Dosage: 9.5 MG, DAILY (18 MG RIVASTIGMINE BASE, PATCH 10 (CM2))
     Route: 062

REACTIONS (2)
  - Behavioural and psychiatric symptoms of dementia [Recovering/Resolving]
  - Condition aggravated [Recovering/Resolving]
